FAERS Safety Report 25729478 (Version 1)
Quarter: 2025Q3

REPORT INFORMATION
  Report Type: Spontaneous
  Country: EU (occurrence: EU)
  Receive Date: 20250827
  Receipt Date: 20250827
  Transmission Date: 20251021
  Serious: Yes (Other)
  Sender: CHEPLAPHARM
  Company Number: None

PATIENT
  Age: 77 Year
  Sex: Male

DRUGS (3)
  1. QUETIAPINE [Suspect]
     Active Substance: QUETIAPINE
     Indication: Dementia
     Dosage: 25MG EVERY 24 HOURS?DAILY DOSE: 25 MILLIGRAM
     Route: 048
     Dates: start: 20230131, end: 20240808
  2. QUETIAPINE [Suspect]
     Active Substance: QUETIAPINE
     Indication: Dementia
     Dosage: DAILY DOSE: 25 MILLIGRAM
     Route: 048
     Dates: start: 20241128, end: 20250117
  3. ARIPIPRAZOLE [Concomitant]
     Active Substance: ARIPIPRAZOLE
     Indication: Dementia
     Dosage: 5MG EVERY 24 HOURS?DAILY DOSE: 5 MILLIGRAM
     Route: 048
     Dates: start: 20240809, end: 20241127

REACTIONS (6)
  - Barotitis media [Recovered/Resolved]
  - Parkinsonian gait [Recovered/Resolved]
  - Eye haematoma [Recovered/Resolved]
  - Cognitive disorder [Unknown]
  - Fall [Unknown]
  - Off label use [Recovered/Resolved]

NARRATIVE: CASE EVENT DATE: 20230131
